FAERS Safety Report 17372276 (Version 2)
Quarter: 2020Q1

REPORT INFORMATION
  Report Type: Spontaneous
  Country: JP (occurrence: JP)
  Receive Date: 20200205
  Receipt Date: 20200302
  Transmission Date: 20200409
  Serious: Yes (Hospitalization, Other)
  Sender: FDA-Public Use
  Company Number: JP-BRISTOL-MYERS SQUIBB COMPANY-BMS-2020-008396

PATIENT
  Age: 97 Year
  Sex: Female

DRUGS (1)
  1. ELIQUIS [Suspect]
     Active Substance: APIXABAN
     Indication: CEREBROVASCULAR ACCIDENT PROPHYLAXIS
     Route: 048

REACTIONS (6)
  - Internal haemorrhage [Unknown]
  - Blood creatinine increased [Unknown]
  - Epistaxis [Unknown]
  - Prescribed overdose [Unknown]
  - Dementia [Unknown]
  - Haematuria [Unknown]
